FAERS Safety Report 5862739-0 (Version None)
Quarter: 2008Q3

REPORT INFORMATION
  Report Type: 
  Country: None (occurrence: None)
  Receive Date: 20080827
  Receipt Date: 20080827
  Transmission Date: 20090109
  Serious: No
  Sender: FDA-Public Use
  Company Number: None

PATIENT
  Sex: Male
  Weight: 83.9154 kg

DRUGS (2)
  1. CYMBALTA [Suspect]
     Indication: BACK PAIN
     Dosage: 20MG -60MG A.M. PO
     Route: 048
     Dates: start: 20060606, end: 20071218
  2. CYMBALTA [Suspect]
     Indication: DEPRESSION
     Dosage: 20MG -60MG A.M. PO
     Route: 048
     Dates: start: 20060606, end: 20071218

REACTIONS (1)
  - CONSTIPATION [None]
